FAERS Safety Report 8759074 (Version 1)
Quarter: 2012Q4

REPORT INFORMATION
  Report Type: 
  Country: NZ (occurrence: NZ)
  Receive Date: 20120829
  Receipt Date: 20120829
  Transmission Date: 20130627
  Serious: Yes (Other)
  Sender: FDA-Public Use
  Company Number: NZ-009507513-1208NZL009870

PATIENT

DRUGS (1)
  1. ESTRIOL [Suspect]
     Dosage: UNK
     Dates: start: 20120817

REACTIONS (1)
  - Toxic shock syndrome [Recovered/Resolved]
